FAERS Safety Report 13179822 (Version 1)
Quarter: 2017Q1

REPORT INFORMATION
  Report Type: Spontaneous
  Country: US (occurrence: US)
  Receive Date: 20170202
  Receipt Date: 20170202
  Transmission Date: 20170428
  Serious: No
  Sender: FDA-Public Use
  Company Number: US-GLAXOSMITHKLINE-US2017014104

PATIENT
  Sex: Male

DRUGS (2)
  1. DUTASTERIDE CAPSULE [Suspect]
     Active Substance: DUTASTERIDE
     Indication: BENIGN PROSTATIC HYPERPLASIA
     Dosage: 0.5 MG, 1D
     Route: 048
     Dates: start: 201408
  2. DUTASTERIDE CAPSULE [Suspect]
     Active Substance: DUTASTERIDE
     Dosage: UNK

REACTIONS (1)
  - Drug ineffective [Unknown]
